FAERS Safety Report 15474992 (Version 2)
Quarter: 2018Q4

REPORT INFORMATION
  Report Type: Report from Study
  Country: ZA (occurrence: ZA)
  Receive Date: 20181008
  Receipt Date: 20181112
  Transmission Date: 20190205
  Serious: Yes (Life-Threatening, Hospitalization, Disabling, Other)
  Sender: FDA-Public Use
  Company Number: ZA-SAKK-2018SA197246AA

PATIENT
  Age: 72 Year
  Sex: Male

DRUGS (5)
  1. INSULIN GLARGINE [Suspect]
     Active Substance: INSULIN GLARGINE
     Indication: TYPE 2 DIABETES MELLITUS
     Dosage: 8 UNITS AT BREAKFAST AND 21 UNITS IN NIGHT, BID
     Dates: start: 20180629, end: 20181023
  2. TOUJEO [Suspect]
     Active Substance: INSULIN GLARGINE
     Indication: TYPE 2 DIABETES MELLITUS
     Dosage: 8 U, QD
     Dates: start: 20180915, end: 20181023
  3. ECOTRIN [Concomitant]
     Active Substance: ASPIRIN
     Dosage: 10 MG
     Dates: start: 20180629
  4. SERLIFE [Concomitant]
     Active Substance: SERTRALINE HYDROCHLORIDE
     Dosage: 50 MG
     Dates: start: 20180101
  5. TAREG [Concomitant]
     Active Substance: VALSARTAN
     Dosage: 160 MG
     Dates: start: 20180101

REACTIONS (7)
  - Malaise [Recovered/Resolved]
  - Hospitalisation [Unknown]
  - Inappropriate schedule of product administration [Unknown]
  - Organ failure [Recovered/Resolved]
  - Drug ineffective [Unknown]
  - Body temperature increased [Recovered/Resolved]
  - Coma [Not Recovered/Not Resolved]

NARRATIVE: CASE EVENT DATE: 20180713
